FAERS Safety Report 8510320 (Version 3)
Quarter: 2014Q1

REPORT INFORMATION
  Report Type: Spontaneous
  Country: JP (occurrence: None)
  Receive Date: 20120409
  Receipt Date: 20140207
  Transmission Date: 20141002
  Serious: Yes (Hospitalization, Other)
  Sender: FDA-Public Use
  Company Number: ADR-2010-9245

PATIENT
  Age: 12 Year
  Sex: Male
  Weight: 20 kg

DRUGS (7)
  1. BACLOFEN [Suspect]
     Indication: MUSCLE SPASTICITY
     Dosage: SEE B5 MCG, DAILY, INTR
     Route: 037
  2. TOPIRAMATE [Concomitant]
  3. SOLITA [Concomitant]
  4. PERIACTIN [Concomitant]
  5. RIVOTRIL [Concomitant]
  6. DEPAKENE [Concomitant]
  7. RACOL [Concomitant]

REACTIONS (2)
  - Cyclic vomiting syndrome [None]
  - Joint dislocation [None]
